FAERS Safety Report 21824744 (Version 1)
Quarter: 2023Q1

REPORT INFORMATION
  Report Type: Spontaneous
  Country: US (occurrence: US)
  Receive Date: 20230105
  Receipt Date: 20230105
  Transmission Date: 20230418
  Serious: No
  Sender: FDA-Public Use
  Company Number: US-PFIZER INC-202300000789

PATIENT
  Sex: Female

DRUGS (1)
  1. PAXLOVID [Suspect]
     Active Substance: NIRMATRELVIR\RITONAVIR
     Indication: COVID-19 treatment
     Dosage: UNK, 2X/DAY (TAKEN OUR SETS FOR BEDTIME + MORNING)
     Dates: start: 202212, end: 202212

REACTIONS (4)
  - COVID-19 [Recovering/Resolving]
  - Condition aggravated [Recovering/Resolving]
  - Hypoaesthesia [Recovering/Resolving]
  - Dry mouth [Recovering/Resolving]

NARRATIVE: CASE EVENT DATE: 20221231
